FAERS Safety Report 7010840-0 (Version None)
Quarter: 2010Q3

REPORT INFORMATION
  Report Type: 
  Country: None (occurrence: None)
  Receive Date: 20100923
  Receipt Date: 20100916
  Transmission Date: 20110219
  Serious: Yes (Disabling, Other)
  Sender: FDA-Public Use
  Company Number: US-GILEAD-2010-0031263

PATIENT
  Sex: Male

DRUGS (9)
  1. TRUVADA [Suspect]
     Indication: HEPATITIS
     Dates: start: 20090601
  2. ISENTRESS [Concomitant]
  3. NEURONTIN [Concomitant]
  4. TESTOSTERONE [Concomitant]
     Indication: HYPOGONADISM
     Dates: start: 20090101
  5. FOSAMAX [Concomitant]
  6. PRAVACHOL [Concomitant]
  7. HYDROCODONE [Concomitant]
  8. LAMICTAL [Concomitant]
  9. CYMBALTA [Concomitant]

REACTIONS (2)
  - OSTEOPOROSIS [None]
  - PAIN [None]
